FAERS Safety Report 8519018-2 (Version None)
Quarter: 2012Q3

REPORT INFORMATION
  Report Type: 
  Country: None (occurrence: None)
  Receive Date: 20120718
  Receipt Date: 20120710
  Transmission Date: 20120928
  Serious: Yes (Hospitalization)
  Sender: FDA-Public Use
  Company Number: PHHY2012FR060855

PATIENT
  Sex: Female
  Weight: 56 kg

DRUGS (3)
  1. VANCOMYCIN HCL [Suspect]
     Indication: POST PROCEDURAL INFECTION
     Dosage: 2 G, UNK
     Route: 042
     Dates: start: 20120521, end: 20120522
  2. CIPROFLOXACIN HYDROCHLORIDE [Concomitant]
     Dates: start: 20120521
  3. TAZOBACTAM [Concomitant]
     Dates: start: 20120521

REACTIONS (7)
  - ANAEMIA [None]
  - LUNG DISORDER [None]
  - RENAL FAILURE ACUTE [None]
  - HYPERKALAEMIA [None]
  - URINE OUTPUT DECREASED [None]
  - PULMONARY EMBOLISM [None]
  - ACCIDENTAL OVERDOSE [None]
